FAERS Safety Report 9481736 (Version 2)
Quarter: 2013Q3

REPORT INFORMATION
  Report Type: Spontaneous
  Country: US (occurrence: US)
  Receive Date: 20130828
  Receipt Date: 20130828
  Transmission Date: 20140515
  Serious: Yes (Other)
  Sender: FDA-Public Use
  Company Number: US-AMGEN-KDL142392

PATIENT
  Age: 74 Year
  Sex: Female

DRUGS (2)
  1. ENBREL [Suspect]
     Indication: RHEUMATOID ARTHRITIS
     Dosage: 50 MG, QWK
     Route: 058
     Dates: start: 20050301
  2. METHOTREXATE [Concomitant]
     Dosage: UNK UNK, 4 TIMES/WK
     Route: 048
     Dates: start: 20040501

REACTIONS (6)
  - Pulmonary mass [Unknown]
  - Axillary mass [Unknown]
  - Rheumatoid arthritis [Unknown]
  - Condition aggravated [Unknown]
  - Cystitis [Recovered/Resolved]
  - Injection site reaction [Unknown]
